FAERS Safety Report 12514762 (Version 1)
Quarter: 2016Q2

REPORT INFORMATION
  Report Type: Spontaneous
  Country: US (occurrence: None)
  Receive Date: 20160629
  Receipt Date: 20160629
  Transmission Date: 20160815
  Serious: No
  Sender: FDA-Public Use
  Company Number: None

PATIENT
  Age: 24 Year
  Sex: Male

DRUGS (1)
  1. DIPHENHYDRAMINE. [Suspect]
     Active Substance: DIPHENHYDRAMINE
     Indication: INSOMNIA
     Route: 048
     Dates: start: 20150602, end: 20150608

REACTIONS (2)
  - Middle insomnia [None]
  - Nightmare [None]

NARRATIVE: CASE EVENT DATE: 20150608
